FAERS Safety Report 8511700-6 (Version None)
Quarter: 2012Q2

REPORT INFORMATION
  Report Type: 
  Country: None (occurrence: None)
  Receive Date: 20120406
  Receipt Date: 20100408
  Transmission Date: 20120825
  Serious: Yes (Other)
  Sender: FDA-Public Use
  Company Number: PHHY2010US20765

PATIENT
  Age: 69 Year
  Sex: Male
  Weight: 85.3 kg

DRUGS (5)
  1. TASIGNA [Suspect]
     Indication: CHRONIC MYELOID LEUKAEMIA
     Dosage: 400 MG, BID, ORAL  : HALF DOSE
     Route: 048
     Dates: start: 20100121, end: 20100214
  2. BENICAR [Concomitant]
  3. GLIPIZIDE [Concomitant]
  4. METFFORMIN HYDROCHLORIDE [Concomitant]
  5. HYDROCHLOROTHIAZIDE [Concomitant]

REACTIONS (4)
  - OEDEMA PERIPHERAL [None]
  - PAIN [None]
  - MALAISE [None]
  - BLOOD GLUCOSE INCREASED [None]
